FAERS Safety Report 12341557 (Version 1)
Quarter: 2016Q2

REPORT INFORMATION
  Report Type: Spontaneous
  Country: MX (occurrence: MX)
  Receive Date: 20160506
  Receipt Date: 20160506
  Transmission Date: 20160815
  Serious: Yes (Death)
  Sender: FDA-Public Use
  Company Number: MX-PFIZER INC-2016234007

PATIENT
  Age: 9 Year
  Sex: Female

DRUGS (1)
  1. EPIRUBICIN HCL [Suspect]
     Active Substance: EPIRUBICIN HYDROCHLORIDE
     Indication: HODGKIN^S DISEASE
     Dosage: UNK, (12 EPIRUBICIN DOSES) (CUMULATIVE DOSE OF 576 MG/M2)

REACTIONS (1)
  - Congestive cardiomyopathy [Fatal]
